FAERS Safety Report 18313558 (Version 1)
Quarter: 2020Q3

REPORT INFORMATION
  Report Type: Spontaneous
  Country: US (occurrence: US)
  Receive Date: 20200925
  Receipt Date: 20200925
  Transmission Date: 20201103
  Serious: No
  Sender: FDA-Public Use
  Company Number: US-BAYER-2020-195538

PATIENT

DRUGS (1)
  1. ALEVE [Suspect]
     Active Substance: NAPROXEN SODIUM
     Indication: PAIN
     Dosage: UNK
     Dates: start: 20200906

REACTIONS (2)
  - Drug ineffective [Unknown]
  - Gait disturbance [Unknown]

NARRATIVE: CASE EVENT DATE: 202009
